FAERS Safety Report 10511484 (Version 2)
Quarter: 2014Q4

REPORT INFORMATION
  Report Type: Spontaneous
  Country: US (occurrence: US)
  Receive Date: 20141010
  Receipt Date: 20141029
  Transmission Date: 20150528
  Serious: Yes (Death)
  Sender: FDA-Public Use
  Company Number: US-B.I. PHARMACEUTICALS,INC./RIDGEFIELD-2014-BI-46974BP

PATIENT
  Age: 72 Year
  Sex: Male
  Weight: 97.52 kg

DRUGS (2)
  1. OXYGEN. [Concomitant]
     Active Substance: OXYGEN
     Indication: EMPHYSEMA
     Route: 065
  2. PRADAXA [Suspect]
     Active Substance: DABIGATRAN ETEXILATE MESYLATE
     Indication: PRODUCT USED FOR UNKNOWN INDICATION
     Dosage: 300 MG
     Route: 048

REACTIONS (5)
  - Death [Fatal]
  - Fall [Recovered/Resolved]
  - Contusion [Unknown]
  - Haemorrhage [Unknown]
  - Laceration [Unknown]

NARRATIVE: CASE EVENT DATE: 20121015
